FAERS Safety Report 15575674 (Version 2)
Quarter: 2019Q1

REPORT INFORMATION
  Report Type: Report from Study
  Country: US (occurrence: US)
  Receive Date: 20181101
  Receipt Date: 20190304
  Transmission Date: 20190417
  Serious: Yes (Hospitalization)
  Sender: FDA-Public Use
  Company Number: US-ASTRAZENECA-2018SF40410

PATIENT
  Age: 47 Year
  Sex: Female
  Weight: 74 kg

DRUGS (8)
  1. SIMETHICONE (DIMETHICONE) [Concomitant]
     Active Substance: DIMETHICONE
  2. FULVESTRANT. [Suspect]
     Active Substance: FULVESTRANT
     Indication: BREAST CANCER
     Route: 030
     Dates: start: 20180914, end: 20180925
  3. LUPRON [Concomitant]
     Active Substance: LEUPROLIDE ACETATE
  4. FEMARA [Concomitant]
     Active Substance: LETROZOLE
  5. LETROZOLE. [Concomitant]
     Active Substance: LETROZOLE
     Dosage: 25 MG
  6. LEUPROLIDE [Concomitant]
     Active Substance: LEUPROLIDE
  7. OXYCODONE [Concomitant]
     Active Substance: OXYCODONE
  8. ENZALUTAMIDE [Suspect]
     Active Substance: ENZALUTAMIDE
     Indication: BREAST CANCER
     Route: 048
     Dates: start: 20180914, end: 20180925

REACTIONS (2)
  - Aspartate aminotransferase increased [Not Recovered/Not Resolved]
  - Gallbladder obstruction [Recovered/Resolved]

NARRATIVE: CASE EVENT DATE: 20180919
